FAERS Safety Report 14978304 (Version 1)
Quarter: 2018Q2

REPORT INFORMATION
  Report Type: Spontaneous
  Country: DE (occurrence: DE)
  Receive Date: 20180606
  Receipt Date: 20180606
  Transmission Date: 20180711
  Serious: Yes (Hospitalization)
  Sender: FDA-Public Use
  Company Number: DE-TEVA-2018-DE-902295

PATIENT
  Age: 84 Year
  Sex: Female
  Weight: 55 kg

DRUGS (3)
  1. PHENPROCOUMON [Suspect]
     Active Substance: PHENPROCOUMON
     Dosage: ACCORDING TO INR
     Route: 048
  2. SIMVASTATIN. [Concomitant]
     Active Substance: SIMVASTATIN
     Dosage: 40 MILLIGRAM DAILY; 40 MG, 0-0-1-0
     Route: 048
  3. METOPROLOL. [Suspect]
     Active Substance: METOPROLOL
     Dosage: 95 MILLIGRAM DAILY; 47.5 MG, 1-0-1-0
     Route: 048

REACTIONS (3)
  - Syncope [Unknown]
  - Wound [Unknown]
  - Fall [Unknown]
